FAERS Safety Report 8818019 (Version 3)
Quarter: 2012Q4

REPORT INFORMATION
  Report Type: 
  Country: US (occurrence: US)
  Receive Date: 20121001
  Receipt Date: 20121031
  Transmission Date: 20130627
  Serious: Yes (Other)
  Sender: FDA-Public Use
  Company Number: US-ASTRAZENECA-2012SE73550

PATIENT
  Age: 63 Year
  Sex: Male

DRUGS (2)
  1. NEXIUM [Suspect]
     Route: 048
  2. NEXIUM [Suspect]
     Dosage: GENERIC
     Route: 048

REACTIONS (14)
  - Limb traumatic amputation [Unknown]
  - Road traffic accident [Unknown]
  - Throat cancer [Unknown]
  - Oesophageal carcinoma [Unknown]
  - Convulsion [Unknown]
  - Spinal fracture [Unknown]
  - Rib fracture [Unknown]
  - Concussion [Unknown]
  - Joint dislocation [Unknown]
  - Cerebrovascular arteriovenous malformation [Unknown]
  - Aneurysm [Unknown]
  - Barrett^s oesophagus [Unknown]
  - Pharyngeal dyskinesia [Unknown]
  - Drug dose omission [Unknown]
